FAERS Safety Report 23816529 (Version 1)
Quarter: 2024Q2

REPORT INFORMATION
  Report Type: Spontaneous
  Country: GB (occurrence: GB)
  Receive Date: 20240503
  Receipt Date: 20240503
  Transmission Date: 20240715
  Serious: Yes (Death, Life-Threatening, Hospitalization, Other)
  Sender: FDA-Public Use
  Company Number: GB-BRISTOL-MYERS SQUIBB COMPANY-2024-044474

PATIENT
  Age: 23 Year
  Sex: Female

DRUGS (28)
  1. ADCETRIS [Suspect]
     Active Substance: BRENTUXIMAB VEDOTIN
     Indication: Primary mediastinal large B-cell lymphoma
     Dosage: 165 MILLIGRAM
     Route: 065
     Dates: start: 20240229
  2. NIVOLUMAB [Suspect]
     Active Substance: NIVOLUMAB
     Indication: Primary mediastinal large B-cell lymphoma
     Dosage: 240 MILLIGRAM, Q3WEEKS
     Route: 065
     Dates: start: 20240301
  3. ACYCLOVIR [Concomitant]
     Active Substance: ACYCLOVIR
     Indication: Prophylaxis
     Dosage: 400 MICROGRAM, BID
     Route: 065
     Dates: start: 20240225
  4. ALENDRONIC ACID [Concomitant]
     Active Substance: ALENDRONIC ACID
     Indication: Prophylaxis
     Dosage: 70 MILLIGRAM, 1/WEEK
     Route: 065
     Dates: start: 20240302
  5. ALLOPURINOL [Concomitant]
     Active Substance: ALLOPURINOL
     Indication: Depressed mood
     Dosage: 75 MILLIGRAM, QD
     Route: 065
     Dates: start: 20240225
  6. AMPHOTERICIN B [Concomitant]
     Active Substance: AMPHOTERICIN B
     Indication: Fungal infection
     Dosage: 350 MILLIGRAM, QD
     Route: 065
     Dates: start: 20240313
  7. APIXABAN [Concomitant]
     Active Substance: APIXABAN
     Indication: Thrombosis prophylaxis
     Dosage: UNK UNK, BID
     Route: 065
     Dates: start: 20240225
  8. COTRIMOXAZOLE [Concomitant]
     Active Substance: SULFAMETHOXAZOLE\TRIMETHOPRIM
     Indication: Infection prophylaxis
     Dosage: 960 MILLIGRAM, BID
     Route: 065
     Dates: start: 20240226
  9. DOMPERIDONE [Concomitant]
     Active Substance: DOMPERIDONE
     Indication: Vomiting
     Dosage: 10 MILLIGRAM
     Route: 065
     Dates: start: 20240225
  10. FENTANYL [Concomitant]
     Active Substance: FENTANYL\FENTANYL CITRATE
     Indication: Analgesic therapy
     Dosage: 200 MICROGRAM
     Route: 065
     Dates: start: 20240302
  11. FILGRASTIM [Concomitant]
     Active Substance: FILGRASTIM
     Indication: White blood cell count abnormal
     Dosage: 300 MICROGRAM, QD
     Route: 065
     Dates: start: 20240229
  12. FLUCONAZOLE [Concomitant]
     Active Substance: FLUCONAZOLE
     Indication: Oral candidiasis
     Dosage: 100 MILLIGRAM, QD
     Route: 065
     Dates: start: 20240301
  13. GABAPENTIN [Concomitant]
     Active Substance: GABAPENTIN
     Indication: Pain
     Dosage: 200 MILLIGRAM, QOD
     Route: 065
     Dates: start: 20240225
  14. GANCICLOVIR [Concomitant]
     Active Substance: GANCICLOVIR
     Indication: Antiviral prophylaxis
     Dosage: 400 MILLIGRAM, QD
     Route: 065
  15. GENTAMICIN SULFATE [Concomitant]
     Active Substance: GENTAMICIN SULFATE
     Indication: Infection
     Dosage: 240 MILLIGRAM, QD
     Route: 065
     Dates: start: 20240303
  16. HYDROCORTISONE [Concomitant]
     Active Substance: HYDROCORTISONE
     Indication: Stress
     Dosage: 50 MILLIGRAM
     Route: 065
     Dates: start: 20240303
  17. BUTYLSCOPOLAMINE BROMIDE [Concomitant]
     Active Substance: BUTYLSCOPOLAMINE BROMIDE
     Indication: Abdominal pain
     Dosage: 20 MILLIGRAM, QD
     Route: 065
     Dates: start: 20240229
  18. LANSOPRAZOLE [Concomitant]
     Active Substance: LANSOPRAZOLE
     Indication: Prophylaxis
     Dosage: 30 MILLIGRAM, QD
     Route: 065
     Dates: start: 20240226
  19. LEVOFLOXACIN [Concomitant]
     Active Substance: LEVOFLOXACIN
     Indication: Infection
     Dosage: 500 MILLIGRAM, QOD
     Route: 065
     Dates: start: 20240308
  20. MEROPENEM [Concomitant]
     Active Substance: MEROPENEM
     Indication: Sepsis
     Dosage: 1 GRAM
     Route: 065
     Dates: start: 20240225
  21. MORPHINE SULFATE [Concomitant]
     Active Substance: MORPHINE SULFATE
     Indication: Analgesic therapy
     Dosage: 10 MICROGRAM
     Route: 065
     Dates: start: 20240226
  22. NORETHINDRONE [Concomitant]
     Active Substance: NORETHINDRONE
     Indication: Menopause
     Dosage: 10 MILLIGRAM
     Route: 065
     Dates: start: 20240225
  23. ONDANSETRON HYDROCHLORIDE [Concomitant]
     Active Substance: ONDANSETRON HYDROCHLORIDE
     Indication: Vomiting
     Dosage: 8 MILLIGRAM, BID
     Route: 065
     Dates: start: 20240226
  24. OXYCODONE [Concomitant]
     Active Substance: OXYCODONE\OXYCODONE HYDROCHLORIDE
     Indication: Pain
     Dosage: UNK UNK, BID
     Route: 065
     Dates: start: 20240226
  25. OXYCODONE [Concomitant]
     Active Substance: OXYCODONE\OXYCODONE HYDROCHLORIDE
     Dosage: 50 MILLIGRAM, BID
     Route: 065
     Dates: start: 20240226
  26. ACETAMINOPHEN [Concomitant]
     Active Substance: ACETAMINOPHEN
     Indication: Pain
     Dosage: 1 GRAM
     Route: 065
     Dates: start: 20240225
  27. RASBURICASE [Concomitant]
     Active Substance: RASBURICASE
     Indication: Prophylaxis
     Dosage: 3 MILLIGRAM
     Route: 065
     Dates: start: 20240229
  28. VANCOMYCIN [Concomitant]
     Active Substance: VANCOMYCIN
     Indication: Sepsis
     Dosage: 1.5 GRAM
     Route: 065
     Dates: start: 20240205

REACTIONS (3)
  - Malignant neoplasm progression [Fatal]
  - Off label use [Fatal]
  - Thrombosis [Fatal]
